FAERS Safety Report 20112110 (Version 1)
Quarter: 2021Q4

REPORT INFORMATION
  Report Type: Spontaneous
  Country: US (occurrence: US)
  Receive Date: 20211125
  Receipt Date: 20211125
  Transmission Date: 20220303
  Serious: Yes (Life-Threatening)
  Sender: FDA-Public Use
  Company Number: US-NOVARTISPH-NVSC2021US268120

PATIENT
  Age: 74 Year
  Sex: Female
  Weight: 53.52 kg

DRUGS (2)
  1. ENTRESTO [Suspect]
     Active Substance: SACUBITRIL\VALSARTAN
     Indication: Cardiac failure
     Dosage: 200 MG, QD (97/103 MG)
     Route: 048
     Dates: start: 20210727
  2. INSULIN NOS [Concomitant]
     Active Substance: INSULIN NOS
     Indication: Product used for unknown indication
     Dosage: REQUIRED GRADUALLY CUTTING INSULIN IN HALF
     Route: 065

REACTIONS (3)
  - Hypoglycaemia [Recovering/Resolving]
  - Presyncope [Recovering/Resolving]
  - Inappropriate schedule of product administration [Unknown]

NARRATIVE: CASE EVENT DATE: 20210727
